FAERS Safety Report 8192047-7 (Version None)
Quarter: 2012Q1

REPORT INFORMATION
  Report Type: 
  Country: None (occurrence: None)
  Receive Date: 20120307
  Receipt Date: 20120305
  Transmission Date: 20120608
  Serious: Yes (Other)
  Sender: FDA-Public Use
  Company Number: PHHY2012GR019318

PATIENT
  Age: 63 Year
  Sex: Female

DRUGS (1)
  1. SANDOSTATIN LAR [Suspect]
     Dosage: 20 MG, UNK
     Dates: start: 20110501, end: 20111001

REACTIONS (1)
  - GAMMA-GLUTAMYLTRANSFERASE INCREASED [None]
